FAERS Safety Report 24379169 (Version 1)
Quarter: 2024Q3

REPORT INFORMATION
  Report Type: Spontaneous
  Country: US (occurrence: US)
  Receive Date: 20240930
  Receipt Date: 20240930
  Transmission Date: 20241017
  Serious: Yes (Hospitalization)
  Sender: AMGEN
  Company Number: US-AMGEN-USASP2024190507

PATIENT
  Age: 65 Year
  Sex: Female

DRUGS (11)
  1. PREDNISONE [Suspect]
     Active Substance: PREDNISONE
     Indication: Chronic obstructive pulmonary disease
     Dosage: 2.5 MILLIGRAM, QD
     Route: 065
  2. PREDNISONE [Suspect]
     Active Substance: PREDNISONE
     Indication: Asthma
     Dosage: 60 MILLIGRAM, QD
     Route: 065
  3. PREDNISONE [Suspect]
     Active Substance: PREDNISONE
     Dosage: UNK (TAPER)
     Route: 065
  4. FLUTICASONE [Concomitant]
     Active Substance: FLUTICASONE
     Indication: Chronic obstructive pulmonary disease
     Dosage: UNK
     Route: 065
  5. FLUTICASONE [Concomitant]
     Active Substance: FLUTICASONE
     Indication: Asthma
  6. UMECLIDINIUM [Concomitant]
     Active Substance: UMECLIDINIUM
     Indication: Chronic obstructive pulmonary disease
     Dosage: UNK
     Route: 065
  7. UMECLIDINIUM [Concomitant]
     Active Substance: UMECLIDINIUM
     Indication: Asthma
  8. MEPOLIZUMAB [Concomitant]
     Active Substance: MEPOLIZUMAB
     Indication: Chronic obstructive pulmonary disease
     Dosage: UNK
     Route: 065
  9. MEPOLIZUMAB [Concomitant]
     Active Substance: MEPOLIZUMAB
     Indication: Asthma
  10. VILANTEROL [Concomitant]
     Active Substance: VILANTEROL
     Indication: Chronic obstructive pulmonary disease
     Dosage: UNK
     Route: 065
  11. VILANTEROL [Concomitant]
     Active Substance: VILANTEROL
     Indication: Asthma

REACTIONS (3)
  - Acute respiratory failure [Recovering/Resolving]
  - Organising pneumonia [Recovering/Resolving]
  - Pneumonitis aspiration [Recovering/Resolving]
